FAERS Safety Report 13216919 (Version 4)
Quarter: 2017Q3

REPORT INFORMATION
  Report Type: Spontaneous
  Country: US (occurrence: US)
  Receive Date: 20170210
  Receipt Date: 20170801
  Transmission Date: 20171127
  Serious: No
  Sender: FDA-Public Use
  Company Number: US-BRISTOL-MYERS SQUIBB COMPANY-BMS-2017-009157

PATIENT
  Age: 37 Year
  Weight: 90.9 kg

DRUGS (1)
  1. ABILIFY [Suspect]
     Active Substance: ARIPIPRAZOLE
     Indication: MAJOR DEPRESSION
     Dosage: 0.5 TAB, QD
     Route: 048
     Dates: start: 20141201, end: 201608

REACTIONS (6)
  - Obsessive-compulsive disorder [Recovered/Resolved]
  - Injury [Unknown]
  - Gambling [Not Recovered/Not Resolved]
  - Emotional distress [Unknown]
  - Mental disorder [Unknown]
  - Prescribed underdose [Unknown]

NARRATIVE: CASE EVENT DATE: 20160411
